FAERS Safety Report 11063767 (Version 2)
Quarter: 2015Q3

REPORT INFORMATION
  Report Type: Spontaneous
  Country: AU (occurrence: AU)
  Receive Date: 20150424
  Receipt Date: 20150724
  Transmission Date: 20151125
  Serious: Yes (Other)
  Sender: FDA-Public Use
  Company Number: AU-009507513-1504AUS011430

PATIENT
  Age: 39 Year
  Sex: Female
  Weight: 100 kg

DRUGS (2)
  1. ORGALUTRAN [Suspect]
     Active Substance: GANIRELIX ACETATE
     Indication: ASSISTED FERTILISATION
     Dosage: TOTAL DAILY DOSE: 500 (UNITS NOT PROVIDED) DOSAGE FORM: 250 (UNITS NOT PROVIDED)
     Route: 030
     Dates: start: 20150411, end: 20150412
  2. MENOPUR [Concomitant]
     Active Substance: FOLLICLE STIMULATING HORMONE BETA POLYPEPTIDE\LUTROPIN ALFA
     Indication: ASSISTED FERTILISATION
     Dosage: TOTAL DAILY DOSE: 200 (UNITS NOT PROVIDED)
     Route: 030
     Dates: start: 20150407, end: 20150415

REACTIONS (5)
  - Vision blurred [Recovered/Resolved]
  - Lip swelling [Recovered/Resolved]
  - Injection site erythema [Unknown]
  - Rash generalised [Recovered/Resolved]
  - Influenza like illness [Unknown]

NARRATIVE: CASE EVENT DATE: 20150411
